FAERS Safety Report 14638771 (Version 1)
Quarter: 2018Q1

REPORT INFORMATION
  Report Type: Spontaneous
  Country: FR (occurrence: FR)
  Receive Date: 20180315
  Receipt Date: 20180315
  Transmission Date: 20180509
  Serious: Yes (Other)
  Sender: FDA-Public Use
  Company Number: FR-MERCK KGAA-2043742

PATIENT
  Age: 60 Year
  Sex: Female

DRUGS (1)
  1. NOVOTHYROX [Suspect]
     Active Substance: LEVOTHYROXINE SODIUM
     Indication: HYPOTHYROIDISM
     Dates: end: 2017

REACTIONS (32)
  - Tri-iodothyronine decreased [None]
  - Nervousness [None]
  - Disturbance in social behaviour [None]
  - Social avoidant behaviour [None]
  - Vitreous detachment [None]
  - Limb injury [None]
  - Dizziness [None]
  - Discomfort [None]
  - Personal relationship issue [None]
  - Fatigue [None]
  - Mood altered [None]
  - Family stress [None]
  - Asthenia [None]
  - Anger [None]
  - Alopecia [None]
  - Chest injury [None]
  - Visual impairment [None]
  - Thyroxine increased [None]
  - Headache [None]
  - Musculoskeletal chest pain [None]
  - Feeling abnormal [None]
  - Weight increased [None]
  - Disturbance in attention [None]
  - Anxiety [None]
  - Muscle strain [None]
  - Fall [None]
  - Pain in extremity [None]
  - Gastric disorder [None]
  - Abdominal pain upper [None]
  - Loss of personal independence in daily activities [None]
  - Axillary pain [None]
  - Vitamin D decreased [None]

NARRATIVE: CASE EVENT DATE: 2017
